FAERS Safety Report 7321168-3 (Version None)
Quarter: 2011Q1

REPORT INFORMATION
  Report Type: 
  Country: None (occurrence: None)
  Receive Date: 20110223
  Receipt Date: 20110223
  Transmission Date: 20110831
  Serious: No
  Sender: FDA-Public Use
  Company Number: None

PATIENT
  Age: 27 Year
  Sex: Male
  Weight: 74.8435 kg

DRUGS (1)
  1. OXYCONTIN [Suspect]
     Indication: BACK INJURY
     Dosage: 1 EVERY 8 HRS
     Dates: start: 20100901, end: 20110120

REACTIONS (8)
  - DIZZINESS [None]
  - ASTHENIA [None]
  - HAEMATOCHEZIA [None]
  - HEADACHE [None]
  - CONSTIPATION [None]
  - DRUG EFFECT DECREASED [None]
  - PRODUCT FORMULATION ISSUE [None]
  - ALOPECIA [None]
